FAERS Safety Report 26046606 (Version 1)
Quarter: 2025Q4

REPORT INFORMATION
  Report Type: Spontaneous
  Country: CN (occurrence: CN)
  Receive Date: 20251114
  Receipt Date: 20251114
  Transmission Date: 20260119
  Serious: Yes (Hospitalization)
  Sender: COHERUS
  Company Number: CN-SHANGHAI JUNSHI BIOSCIENCES CO., LTD.-CN2025016448

PATIENT

DRUGS (6)
  1. TORIPALIMAB [Suspect]
     Active Substance: TORIPALIMAB
     Indication: Lung neoplasm malignant
     Dosage: 240 MG, D1
     Route: 041
     Dates: start: 20250826, end: 20250916
  2. TORIPALIMAB [Suspect]
     Active Substance: TORIPALIMAB
     Dosage: 240 MG, D1
     Route: 041
     Dates: start: 20251001, end: 20251001
  3. ETOPOSIDE [Suspect]
     Active Substance: ETOPOSIDE
     Indication: Lung neoplasm malignant
     Dosage: 146 MG
     Route: 041
     Dates: start: 20250826, end: 20250916
  4. ETOPOSIDE [Suspect]
     Active Substance: ETOPOSIDE
     Dosage: 146 MG, D1
     Route: 041
     Dates: start: 20251001, end: 20251001
  5. CISPLATIN [Suspect]
     Active Substance: CISPLATIN
     Indication: Lung neoplasm malignant
     Dosage: 36 MG, D1-D3
     Route: 041
     Dates: start: 20250826, end: 20250916
  6. CISPLATIN [Suspect]
     Active Substance: CISPLATIN
     Dosage: 36 MG, D1-D3
     Route: 041
     Dates: start: 20251001, end: 20251001

REACTIONS (1)
  - Myelosuppression [Recovering/Resolving]

NARRATIVE: CASE EVENT DATE: 20251023
